FAERS Safety Report 5375838-7 (Version None)
Quarter: 2007Q3

REPORT INFORMATION
  Report Type: 
  Country: None (occurrence: None)
  Receive Date: 20070702
  Receipt Date: 20070618
  Transmission Date: 20080115
  Serious: Yes (Other)
  Sender: FDA-Public Use
  Company Number: PHEH2007US07330

PATIENT
  Sex: Male

DRUGS (1)
  1. FORADIL [Suspect]

REACTIONS (3)
  - DEVICE MALFUNCTION [None]
  - STENT PLACEMENT [None]
  - THERAPEUTIC RESPONSE DECREASED [None]
